FAERS Safety Report 5474964-1 (Version None)
Quarter: 2007Q4

REPORT INFORMATION
  Report Type: 
  Country: None (occurrence: None)
  Receive Date: 20071002
  Receipt Date: 20070921
  Transmission Date: 20080405
  Serious: Yes (Other)
  Sender: FDA-Public Use
  Company Number: US-ROCHE-516234

PATIENT
  Age: 51 Year
  Sex: Female

DRUGS (2)
  1. PEG-INTERFERON A-2A (RO 25-8310) [Suspect]
     Route: 065
     Dates: start: 20070818
  2. RIBAVIRIN [Suspect]
     Route: 065
     Dates: start: 20070818

REACTIONS (3)
  - CYST [None]
  - DEHYDRATION [None]
  - FAECES DISCOLOURED [None]
